FAERS Safety Report 13737615 (Version 1)
Quarter: 2017Q3

REPORT INFORMATION
  Report Type: Spontaneous
  Country: US (occurrence: US)
  Receive Date: 20170710
  Receipt Date: 20170710
  Transmission Date: 20171127
  Serious: No
  Sender: FDA-Public Use
  Company Number: US-SAOL THERAPEUTICS-2016SAO00953

PATIENT
  Sex: Female

DRUGS (3)
  1. MORPHINE [Suspect]
     Active Substance: MORPHINE
     Dosage: 2.4005 MG, \DAY
     Route: 037
  2. BACLOFEN. [Suspect]
     Active Substance: BACLOFEN
     Indication: PAIN
     Dosage: 137.17 ?G, \DAY
     Route: 037
  3. GABAPENTIN. [Concomitant]
     Active Substance: GABAPENTIN
     Route: 048

REACTIONS (4)
  - Somnolence [Unknown]
  - Off label use [Unknown]
  - Balance disorder [Unknown]
  - Feeling abnormal [Unknown]

NARRATIVE: CASE EVENT DATE: 20161021
